FAERS Safety Report 19749655 (Version 1)
Quarter: 2021Q3

REPORT INFORMATION
  Report Type: Spontaneous
  Country: US (occurrence: US)
  Receive Date: 20210826
  Receipt Date: 20210826
  Transmission Date: 20211014
  Serious: No
  Sender: FDA-Public Use
  Company Number: None

PATIENT
  Age: 67 Year
  Sex: Female
  Weight: 83.7 kg

DRUGS (10)
  1. DULOXETINE. [Concomitant]
     Active Substance: DULOXETINE
  2. PROBIOTIC [Concomitant]
     Active Substance: PROBIOTICS NOS
  3. BENZTROPINE. [Suspect]
     Active Substance: BENZTROPINE
     Indication: TREMOR
     Dosage: ?          QUANTITY:1 TABLET(S);?
     Route: 048
  4. COMPLETE VITAMIN [Concomitant]
  5. LORATADINE. [Concomitant]
     Active Substance: LORATADINE
  6. DOCUSATE [Concomitant]
     Active Substance: DOCUSATE
  7. OLANZAPINE. [Concomitant]
     Active Substance: OLANZAPINE
  8. BUPROPION XL [Concomitant]
     Active Substance: BUPROPION
  9. ATORVASTATIN [Concomitant]
     Active Substance: ATORVASTATIN
  10. CALCIUM [Concomitant]
     Active Substance: CALCIUM

REACTIONS (1)
  - Constipation [None]

NARRATIVE: CASE EVENT DATE: 20210816
